FAERS Safety Report 16642111 (Version 1)
Quarter: 2019Q3

REPORT INFORMATION
  Report Type: Spontaneous
  Country: US (occurrence: US)
  Receive Date: 20190727
  Receipt Date: 20190727
  Transmission Date: 20191004
  Serious: Yes (Disabling)
  Sender: FDA-Public Use
  Company Number: None

PATIENT
  Age: 20 Year
  Sex: Male
  Weight: 69.75 kg

DRUGS (14)
  1. VITAMIN B12 [Concomitant]
     Active Substance: CYANOCOBALAMIN
  2. GLUCOSAMINE [Concomitant]
     Active Substance: GLUCOSAMINE
  3. VITAMIN D3 [Concomitant]
     Active Substance: CHOLECALCIFEROL
  4. D-RIBOSE [Concomitant]
     Active Substance: DIETARY SUPPLEMENT
  5. PROBIOTICS [Concomitant]
     Active Substance: PROBIOTICS NOS
  6. MAGNESIUM [Concomitant]
     Active Substance: MAGNESIUM
  7. POTASSIUM [Concomitant]
     Active Substance: POTASSIUM
  8. CIPRODEX [Suspect]
     Active Substance: CIPROFLOXACIN HYDROCHLORIDE\DEXAMETHASONE
     Indication: EAR INFECTION
     Dates: start: 20180813, end: 20180818
  9. BORON [Concomitant]
     Active Substance: BORON
  10. CHLOROPHYLLIN [Concomitant]
     Active Substance: SODIUM COPPER CHLOROPHYLLIN
  11. I-METHYLFOLATE [Concomitant]
  12. ACETYL L-CARNITINE [Concomitant]
     Active Substance: ACETYLCARNITINE
  13. CARNOSINE [Concomitant]
     Active Substance: CARNOSINE
  14. SEA-IODINE [Concomitant]

REACTIONS (3)
  - Tendonitis [None]
  - Neuropathy peripheral [None]
  - Loss of consciousness [None]

NARRATIVE: CASE EVENT DATE: 20181228
